FAERS Safety Report 17830930 (Version 6)
Quarter: 2023Q1

REPORT INFORMATION
  Report Type: Spontaneous
  Country: US (occurrence: US)
  Receive Date: 20200527
  Receipt Date: 20230217
  Transmission Date: 20230418
  Serious: Yes (Hospitalization, Other)
  Sender: FDA-Public Use
  Company Number: US-AMNEAL PHARMACEUTICALS-2020-AMRX-01485

PATIENT
  Age: 51 Year
  Sex: Female
  Weight: 96 kg

DRUGS (20)
  1. ACTIVELLA [Suspect]
     Active Substance: ESTRADIOL\NORETHINDRONE ACETATE
     Indication: Uterine leiomyoma
     Dosage: 1 DOSAGE FORM, DAILY
     Route: 048
     Dates: start: 20190221, end: 20200129
  2. ACTIVELLA [Suspect]
     Active Substance: ESTRADIOL\NORETHINDRONE ACETATE
     Dosage: 1 DOSAGE FORM, DAILY
     Route: 048
     Dates: start: 20200130, end: 20221026
  3. ELAGOLIX [Suspect]
     Active Substance: ELAGOLIX
     Indication: Uterine leiomyoma
     Dosage: 300 MILLIGRAM, BID
     Route: 048
     Dates: start: 20190221, end: 20200129
  4. ELAGOLIX [Suspect]
     Active Substance: ELAGOLIX
     Dosage: 300 MILLIGRAM, BID
     Route: 048
     Dates: start: 20200130, end: 20221026
  5. IBUPROFEN [Concomitant]
     Active Substance: IBUPROFEN
     Indication: Dysmenorrhoea
     Dosage: 700 MG, AS NECESSARY
     Route: 048
     Dates: start: 2016
  6. VITAMIN B12 [Concomitant]
     Active Substance: CYANOCOBALAMIN
     Indication: Supplementation therapy
     Dosage: 500 MILLIGRAM, QD
     Route: 048
     Dates: start: 2000
  7. VITAMIN C [Concomitant]
     Active Substance: ASCORBIC ACID
     Indication: Supplementation therapy
     Dosage: 500 MILLIEQUIVALENT, QD
     Route: 048
     Dates: start: 2000
  8. ALEVE [Concomitant]
     Active Substance: NAPROXEN SODIUM
     Indication: Dysmenorrhoea
     Dosage: 325 MILLIGRAM, QD
     Route: 048
     Dates: start: 1990
  9. FLAXSEED [Concomitant]
     Active Substance: FLAX SEED
     Indication: Supplementation therapy
     Dosage: 1 CAPSULES, QD
     Route: 048
     Dates: start: 201801
  10. FERROUS SULFATE [Concomitant]
     Active Substance: FERROUS SULFATE
     Indication: Anaemia
     Dosage: 2 DOSAGE FORM, QD (325 MG,2 IN 1 D)
     Route: 048
     Dates: start: 20181219
  11. VITAMIN D NOS [Concomitant]
     Active Substance: VITAMIN D NOS
     Indication: Vitamin D decreased
     Dosage: 2 DOSAGE FORM, QD (2000 IU,2 IN 1 D)
     Route: 048
     Dates: start: 20181201
  12. KETOROLAC [Concomitant]
     Active Substance: KETOROLAC TROMETHAMINE
     Indication: Muscle strain
     Dosage: 20 MILLIGRAM, QD
     Route: 048
     Dates: start: 20200327, end: 20200327
  13. KETOROLAC [Concomitant]
     Active Substance: KETOROLAC TROMETHAMINE
     Indication: Intervertebral disc protrusion
  14. VICODIN [Concomitant]
     Active Substance: ACETAMINOPHEN\HYDROCODONE BITARTRATE
     Indication: Muscle strain
     Dosage: 3 DOSAGE FORM, QD
     Route: 048
     Dates: start: 20200328, end: 20200331
  15. CYCLOBENZAPRINE [Concomitant]
     Active Substance: CYCLOBENZAPRINE
     Indication: Muscle strain
     Dosage: 10 MILLIGRAM, QD
     Route: 048
     Dates: start: 20200328, end: 20200411
  16. MEDROL [Concomitant]
     Active Substance: METHYLPREDNISOLONE
     Indication: Muscle strain
     Dosage: 1 DOSAGE FORM, QD
     Route: 048
     Dates: start: 20200328, end: 20200401
  17. APPLE CIDER VINEGAR [Concomitant]
     Active Substance: APPLE CIDER VINEGAR
     Indication: General physical health deterioration
     Dosage: 1200 MILLIGRAM, QD
     Dates: start: 20220409
  18. DIETARY SUPPLEMENT\HERBALS [Concomitant]
     Active Substance: DIETARY SUPPLEMENT\HERBALS
     Indication: Prophylaxis
     Dosage: 400 MILLIGRAM, QD
     Route: 065
     Dates: start: 20220409
  19. NIACIN [Concomitant]
     Active Substance: NIACIN
     Indication: Cardiovascular event prophylaxis
     Dosage: 500 MILLIGRAM, QD
     Route: 065
     Dates: start: 20220409
  20. VITAMINS [Concomitant]
     Active Substance: VITAMINS
     Indication: General physical health deterioration
     Dosage: 1 TABLETS, QD
     Dates: start: 2000

REACTIONS (3)
  - Intervertebral disc protrusion [Recovered/Resolved]
  - Haemoglobin decreased [Not Recovered/Not Resolved]
  - Uterine haemorrhage [Not Recovered/Not Resolved]

NARRATIVE: CASE EVENT DATE: 20200408
